FAERS Safety Report 17400874 (Version 1)
Quarter: 2020Q1

REPORT INFORMATION
  Report Type: Spontaneous
  Country: US (occurrence: US)
  Receive Date: 20200211
  Receipt Date: 20200211
  Transmission Date: 20200409
  Serious: No
  Sender: FDA-Public Use
  Company Number: US-ACCORD-103034

PATIENT
  Age: 64 Year
  Sex: Female

DRUGS (2)
  1. BUSPIRONE [Suspect]
     Active Substance: BUSPIRONE HYDROCHLORIDE
     Indication: DEPRESSION
     Dosage: 10 MG 1/2 TABLET TWICE A DAY
     Route: 048
     Dates: start: 201901
  2. CITALOPRAM [Concomitant]
     Active Substance: CITALOPRAM HYDROBROMIDE
     Route: 048

REACTIONS (1)
  - Nonspecific reaction [Not Recovered/Not Resolved]
